FAERS Safety Report 6244269-X (Version None)
Quarter: 2009Q2

REPORT INFORMATION
  Report Type: 
  Country: None (occurrence: None)
  Receive Date: 20090625
  Receipt Date: 20080731
  Transmission Date: 20091009
  Serious: No
  Sender: FDA-Public Use
  Company Number: US-KINGPHARMUSA00001-K200800912

PATIENT
  Age: 31 Year
  Sex: Female
  Weight: 58.957 kg

DRUGS (2)
  1. BICILLIN L-A [Suspect]
     Indication: LYME DISEASE
     Dosage: UNK, QW
     Route: 030
  2. FLAGYL [Concomitant]
     Indication: LYME DISEASE
     Route: 048

REACTIONS (1)
  - INJECTION SITE PAIN [None]
